FAERS Safety Report 18607052 (Version 4)
Quarter: 2024Q4

REPORT INFORMATION
  Report Type: Report from Study
  Country: CA (occurrence: CA)
  Receive Date: 20201211
  Receipt Date: 20241007
  Transmission Date: 20250115
  Serious: Yes (Hospitalization, Other)
  Sender: TAKEDA
  Company Number: CA-TAKEDA-2020TUS056779

PATIENT
  Age: 75 Year
  Sex: Male

DRUGS (14)
  1. VEDOLIZUMAB [Suspect]
     Active Substance: VEDOLIZUMAB
     Indication: Colitis ulcerative
     Dosage: 300 MILLIGRAM
     Route: 042
     Dates: start: 20201123
  2. VEDOLIZUMAB [Suspect]
     Active Substance: VEDOLIZUMAB
     Dosage: 300 MILLIGRAM
     Route: 042
  3. VEDOLIZUMAB [Suspect]
     Active Substance: VEDOLIZUMAB
     Dosage: 300 MILLIGRAM
     Route: 042
  4. VEDOLIZUMAB [Suspect]
     Active Substance: VEDOLIZUMAB
     Dosage: 300 MILLIGRAM
     Route: 042
  5. LIPITOR [Concomitant]
     Active Substance: ATORVASTATIN CALCIUM
     Dosage: 40 MILLIGRAM
     Route: 048
  6. XARELTO [Concomitant]
     Active Substance: RIVAROXABAN
     Dosage: 20 MILLIGRAM
     Route: 048
  7. BISOPROLOL [Concomitant]
     Active Substance: BISOPROLOL\BISOPROLOL FUMARATE
     Dosage: 75 MILLIGRAM
     Route: 048
  8. PERINDOPRIL [Concomitant]
     Active Substance: PERINDOPRIL
     Dosage: 4 MILLIGRAM
     Route: 048
  9. METHOTREXATE [Concomitant]
     Active Substance: METHOTREXATE
     Dosage: 17.5 MILLIGRAM
     Route: 058
  10. ALLOPURINOL [Concomitant]
     Active Substance: ALLOPURINOL
     Dosage: 400 MILLIGRAM
     Route: 048
  11. VITAMIN D [Concomitant]
     Active Substance: VITAMIN D NOS
     Dosage: 2000 INTERNATIONAL UNIT
     Route: 048
  12. FOLIC ACID [Concomitant]
     Active Substance: FOLIC ACID
     Dosage: 5 MILLIGRAM
     Route: 048
  13. MAGNESIUM [Concomitant]
     Active Substance: MAGNESIUM
     Dosage: UNK
  14. B12 [Concomitant]
     Dosage: UNK

REACTIONS (5)
  - Cardiac operation [Unknown]
  - Cardioversion [Recovered/Resolved with Sequelae]
  - Heart rate increased [Unknown]
  - Stress [Unknown]
  - Blood pressure increased [Unknown]

NARRATIVE: CASE EVENT DATE: 20240620
